FAERS Safety Report 5451872-3 (Version None)
Quarter: 2007Q3

REPORT INFORMATION
  Report Type: 
  Country: None (occurrence: None)
  Receive Date: 20070912
  Receipt Date: 20070713
  Transmission Date: 20080115
  Serious: Yes (Hospitalization, Other)
  Sender: FDA-Public Use
  Company Number: 2007EU001627

PATIENT
  Age: 52 Year
  Sex: Male
  Weight: 58 kg

DRUGS (4)
  1. FK506 (TACROLIMUS CAPSULES) (TACROLIMUS) CAPSULE [Suspect]
     Indication: RENAL TRANSPLANT
     Dosage: 6 MG, /D, ORAL
     Route: 048
     Dates: start: 20061209, end: 20070103
  2. EVEROLIMUS (EVEROLIMUS) [Suspect]
     Indication: RENAL TRANSPLANT
     Dosage: 3 MG, /D, ORAL
     Route: 048
     Dates: start: 20061210, end: 20070103
  3. PREDNISONE [Concomitant]
  4. MYCOPHENOLATE MOFETIL [Concomitant]

REACTIONS (1)
  - LYMPHOCELE [None]
